FAERS Safety Report 14579393 (Version 2)
Quarter: 2018Q2

REPORT INFORMATION
  Report Type: Spontaneous
  Country: US (occurrence: US)
  Receive Date: 20180227
  Receipt Date: 20180424
  Transmission Date: 20180711
  Serious: Yes (Hospitalization, Other)
  Sender: FDA-Public Use
  Company Number: US-OTSUKA-2018_004110

PATIENT
  Age: 1 Year
  Sex: Male

DRUGS (1)
  1. ABILIFY [Suspect]
     Active Substance: ARIPIPRAZOLE
     Indication: ACCIDENTAL EXPOSURE TO PRODUCT
     Dosage: 40 MG, SINGLE
     Route: 048
     Dates: start: 20180208, end: 20180208

REACTIONS (6)
  - Tremor [Not Recovered/Not Resolved]
  - Product closure issue [Unknown]
  - Loss of consciousness [Unknown]
  - Seizure [Not Recovered/Not Resolved]
  - Sluggishness [Not Recovered/Not Resolved]
  - Accidental exposure to product [Unknown]

NARRATIVE: CASE EVENT DATE: 20180208
